FAERS Safety Report 26001417 (Version 1)
Quarter: 2025Q4

REPORT INFORMATION
  Report Type: Spontaneous
  Country: US (occurrence: US)
  Receive Date: 20251105
  Receipt Date: 20251105
  Transmission Date: 20260117
  Serious: Yes (Other)
  Sender: PFIZER
  Company Number: US-PFIZER INC-PV202500128127

PATIENT
  Age: 73 Year
  Weight: 91.63 kg

DRUGS (2)
  1. LORBRENA [Suspect]
     Active Substance: LORLATINIB
     Indication: Brain neoplasm malignant
     Dosage: 100 MG, 1X/DAY
  2. KEPPRA [Concomitant]
     Active Substance: LEVETIRACETAM
     Dosage: UNK

REACTIONS (2)
  - Brain neoplasm malignant [Unknown]
  - Malignant neoplasm progression [Unknown]
